FAERS Safety Report 14303600 (Version 1)
Quarter: 2017Q4

REPORT INFORMATION
  Report Type: Other
  Country: JP (occurrence: JP)
  Receive Date: 20171219
  Receipt Date: 20171219
  Transmission Date: 20180321
  Serious: Yes (Hospitalization, Other)
  Sender: FDA-Public Use
  Company Number: JP-OTSUKA-2016_019712

PATIENT
  Age: 35 Year
  Sex: Male

DRUGS (9)
  1. ABILIFY [Suspect]
     Active Substance: ARIPIPRAZOLE
     Indication: HALLUCINATION
     Dosage: 30 MG, QD
     Route: 048
     Dates: start: 20130830, end: 20130907
  2. ABILIFY [Suspect]
     Active Substance: ARIPIPRAZOLE
     Indication: SCHIZOPHRENIA
     Dosage: 24 MG, QD
     Route: 048
     Dates: start: 20130719, end: 20130829
  3. RISPERIDONE. [Suspect]
     Active Substance: RISPERIDONE
     Dosage: 6 MG, QD
     Route: 048
     Dates: start: 20130615, end: 20130718
  4. FLUNITRAZEPAM AMEL [Concomitant]
     Indication: PRODUCT USED FOR UNKNOWN INDICATION
     Dosage: 2 MG, QD
     Route: 048
     Dates: start: 20130615, end: 20130906
  5. RISPERIDONE. [Suspect]
     Active Substance: RISPERIDONE
     Indication: PRODUCT USED FOR UNKNOWN INDICATION
     Dosage: 4 MG, QD
     Route: 048
     Dates: start: 20130719, end: 20130907
  6. ABILIFY [Suspect]
     Active Substance: ARIPIPRAZOLE
     Indication: DELUSION
     Dosage: 12 MG, QD
     Route: 048
     Dates: start: 20130621, end: 20130704
  7. ABILIFY [Suspect]
     Active Substance: ARIPIPRAZOLE
     Indication: SEDATION
     Dosage: 18 MG, QD
     Route: 048
     Dates: start: 20130705, end: 20130718
  8. RISPERDAL CONSTA [Suspect]
     Active Substance: RISPERIDONE
     Indication: PRODUCT USED FOR UNKNOWN INDICATION
     Dosage: 25 MG, BIWEEKLY
     Route: 030
     Dates: start: 20130624, end: 20130902
  9. BROTIZOLAM M [Concomitant]
     Active Substance: BROTIZOLAM
     Indication: PRODUCT USED FOR UNKNOWN INDICATION
     Dosage: 0.25 MG, QD
     Route: 048
     Dates: start: 20130615, end: 20130906

REACTIONS (7)
  - Muscle twitching [Recovered/Resolved]
  - Polydipsia [Recovered/Resolved]
  - Altered state of consciousness [Recovered/Resolved]
  - Neuroleptic malignant syndrome [Unknown]
  - Electrolyte imbalance [Recovered/Resolved]
  - Vomiting [Recovered/Resolved]
  - Rhabdomyolysis [Recovered/Resolved]

NARRATIVE: CASE EVENT DATE: 20130907
